FAERS Safety Report 8832681 (Version 2)
Quarter: 2013Q1

REPORT INFORMATION
  Report Type: Spontaneous
  Country: US (occurrence: US)
  Receive Date: 20121010
  Receipt Date: 20130219
  Transmission Date: 20140127
  Serious: No
  Sender: FDA-Public Use
  Company Number: US-PFIZER INC-2012246619

PATIENT
  Age: 71 Year
  Sex: Male
  Weight: 66.21 kg

DRUGS (3)
  1. SUTENT [Suspect]
     Indication: RENAL CELL CARCINOMA
     Dosage: 37.5 MG, UNK
     Route: 048
     Dates: start: 20110914, end: 20121004
  2. SUTENT [Suspect]
     Indication: RENAL CANCER
  3. EVEROLIMUS [Suspect]
     Indication: RENAL CANCER
     Dosage: UNK

REACTIONS (3)
  - Disease progression [Unknown]
  - Renal cell carcinoma [Unknown]
  - White blood cell disorder [Unknown]
